FAERS Safety Report 9592398 (Version 1)
Quarter: 2013Q4

REPORT INFORMATION
  Report Type: Report from Study
  Country: CA (occurrence: CA)
  Receive Date: 20131004
  Receipt Date: 20131004
  Transmission Date: 20140711
  Serious: Yes (Other)
  Sender: FDA-Public Use
  Company Number: CA-JNJFOC-20130917675

PATIENT
  Age: 53 Year
  Sex: Male
  Weight: 92 kg

DRUGS (11)
  1. REMICADE [Suspect]
     Indication: PYODERMA GANGRENOSUM
     Route: 042
     Dates: start: 20120209
  2. NOVOGESIC [Concomitant]
     Route: 048
  3. CALCITE [Concomitant]
     Route: 048
  4. GLICLAZIDE [Concomitant]
     Route: 065
  5. HYDROCHLOROTHIAZIDE [Concomitant]
     Route: 048
  6. NITRO [Concomitant]
     Route: 065
  7. OXAZEPAM [Concomitant]
     Route: 065
  8. VALSARTAN [Concomitant]
     Route: 065
  9. PREDNISONE [Concomitant]
     Route: 065
  10. NASONEX [Concomitant]
     Route: 065
  11. VENTOLIN [Concomitant]
     Route: 065

REACTIONS (4)
  - Contusion [Unknown]
  - Peripheral coldness [Unknown]
  - Pain in extremity [Unknown]
  - Off label use [Unknown]
